FAERS Safety Report 14038858 (Version 2)
Quarter: 2017Q4

REPORT INFORMATION
  Report Type: Spontaneous
  Country: GB (occurrence: GB)
  Receive Date: 20171004
  Receipt Date: 20171006
  Transmission Date: 20180321
  Serious: Yes (Other)
  Sender: FDA-Public Use
  Company Number: GB-TEVA-810790ACC

PATIENT
  Sex: Male

DRUGS (1)
  1. IBUPROFEN. [Suspect]
     Active Substance: IBUPROFEN
     Indication: TENDONITIS

REACTIONS (4)
  - Rash [Recovering/Resolving]
  - Hypersensitivity [Unknown]
  - Herpes zoster [Unknown]
  - Pruritus [Recovering/Resolving]
